FAERS Safety Report 18041739 (Version 1)
Quarter: 2020Q3

REPORT INFORMATION
  Report Type: Spontaneous
  Country: IE (occurrence: IE)
  Receive Date: 20200720
  Receipt Date: 20200720
  Transmission Date: 20201103
  Serious: Yes (Death, Other)
  Sender: FDA-Public Use
  Company Number: IE-TEVA-2020-IE-1800725

PATIENT
  Age: 44 Year
  Sex: Female

DRUGS (10)
  1. XANAX [Suspect]
     Active Substance: ALPRAZOLAM
     Dosage: UNK
     Route: 065
  2. EDDP (2?ETHYLIDENE?1, 5?DIMETHYL?3, 3?DIPHENYLPYRROLIDINE) [Suspect]
     Active Substance: METHADONE HYDROCHLORIDE
     Route: 065
  3. PREGABALIN (G) [Suspect]
     Active Substance: PREGABALIN
     Route: 065
  4. TEMAZEPAM (G) [Suspect]
     Active Substance: TEMAZEPAM
     Route: 065
  5. MORPHINE (G) [Suspect]
     Active Substance: MORPHINE
     Route: 065
  6. CODEINE (G) [Suspect]
     Active Substance: CODEINE
     Route: 065
  7. METHADONE [Suspect]
     Active Substance: METHADONE HYDROCHLORIDE
     Route: 065
  8. OXAZEPAM. [Suspect]
     Active Substance: OXAZEPAM
     Route: 065
  9. NORDIAZEPAM [Suspect]
     Active Substance: NORDAZEPAM
     Route: 065
  10. DIAZEPAM (G) [Suspect]
     Active Substance: DIAZEPAM
     Route: 065

REACTIONS (3)
  - Suspected counterfeit product [Fatal]
  - Dyspnoea [Unknown]
  - Death [Fatal]

NARRATIVE: CASE EVENT DATE: 20200426
